FAERS Safety Report 6285473-4 (Version None)
Quarter: 2009Q3

REPORT INFORMATION
  Report Type: 
  Country: None (occurrence: None)
  Receive Date: 20090727
  Receipt Date: 20090713
  Transmission Date: 20100115
  Serious: Yes (Life-Threatening, Disabling, Other)
  Sender: FDA-Public Use
  Company Number: GB-MYLANLABS-2009S1012393

PATIENT
  Age: 14 Year
  Sex: Female

DRUGS (2)
  1. LORATADINE [Suspect]
     Indication: SEASONAL ALLERGY
     Route: 048
  2. DISODIUM CROMOGLYCATE [Concomitant]
     Indication: SEASONAL ALLERGY
     Route: 061

REACTIONS (2)
  - BRONCHOSPASM [None]
  - DYSPHAGIA [None]
